FAERS Safety Report 24267903 (Version 1)
Quarter: 2024Q3

REPORT INFORMATION
  Report Type: Spontaneous
  Country: FI (occurrence: FI)
  Receive Date: 20240830
  Receipt Date: 20240830
  Transmission Date: 20241016
  Serious: Yes (Other)
  Sender: Vantive US Healthcare
  Company Number: FI-VANTIVE-2024VAN019366

PATIENT

DRUGS (3)
  1. CALCIUM CHLORIDE\DEXTROSE MONOHYDRATE\LACTIC ACID\MAGNESIUM CHLORIDE\P [Suspect]
     Active Substance: CALCIUM CHLORIDE\DEXTROSE MONOHYDRATE\LACTIC ACID\MAGNESIUM CHLORIDE\POTASSIUM CHLORIDE\SODIUM BICAR
     Indication: Haemofiltration
     Dosage: UNK
     Route: 065
     Dates: start: 20240818, end: 20240821
  2. MAGNESIUM CHLORIDE\POTASSIUM CHLORIDE\SODIUM BICARBONATE\SODIUM CHLORI [Suspect]
     Active Substance: MAGNESIUM CHLORIDE\POTASSIUM CHLORIDE\SODIUM BICARBONATE\SODIUM CHLORIDE\SODIUM PHOSPHATE, DIBASIC
     Indication: Haemofiltration
     Dosage: UNK
     Route: 065
     Dates: start: 20240818, end: 20240821
  3. CITRATE [Suspect]
     Active Substance: CITRIC ACID MONOHYDRATE
     Indication: Haemofiltration
     Dosage: UNK
     Route: 065
     Dates: start: 20240818, end: 20240821

REACTIONS (2)
  - Blood potassium increased [Unknown]
  - Treatment failure [Unknown]

NARRATIVE: CASE EVENT DATE: 20240821
